FAERS Safety Report 6328260-0 (Version None)
Quarter: 2009Q3

REPORT INFORMATION
  Report Type: 
  Country: None (occurrence: None)
  Receive Date: 20090825
  Receipt Date: 20090303
  Transmission Date: 20100115
  Serious: No
  Sender: FDA-Public Use
  Company Number: US-ABBOTT-09P-163-0560772-00

PATIENT
  Sex: Female
  Weight: 54.48 kg

DRUGS (8)
  1. SYNTHROID [Suspect]
     Indication: HYPOTHYROIDISM
     Dates: start: 19890101
  2. SYNTHROID [Suspect]
     Dates: start: 19890101
  3. SYNTHROID [Suspect]
     Dates: start: 20090101
  4. SYNTHROID [Suspect]
     Dates: start: 20090101
  5. NEXIUM [Suspect]
     Indication: DRUG USE FOR UNKNOWN INDICATION
  6. CARDIZEM LA [Concomitant]
     Indication: DRUG USE FOR UNKNOWN INDICATION
  7. AZMACORT [Concomitant]
     Indication: ASTHMA
  8. VALIUM [Concomitant]
     Indication: DRUG USE FOR UNKNOWN INDICATION
     Dosage: PRN

REACTIONS (4)
  - ANXIETY [None]
  - BLOOD THYROID STIMULATING HORMONE DECREASED [None]
  - FEELING ABNORMAL [None]
  - PALPITATIONS [None]
